FAERS Safety Report 11981522 (Version 1)
Quarter: 2016Q1

REPORT INFORMATION
  Report Type: Spontaneous
  Country: US (occurrence: None)
  Receive Date: 20160129
  Receipt Date: 20160129
  Transmission Date: 20160526
  Serious: Yes (Hospitalization)
  Sender: FDA-Public Use
  Company Number: None

PATIENT
  Age: 56 Year
  Sex: Female
  Weight: 170.8 kg

DRUGS (15)
  1. MORPHINE [Suspect]
     Active Substance: MORPHINE
     Indication: PAIN
     Dosage: 0.1MG/HR CONTINUOUS SQ?CHRONIC
     Route: 058
  2. K-DUR [Concomitant]
     Active Substance: POTASSIUM CHLORIDE
  3. CYMBALTA [Suspect]
     Active Substance: DULOXETINE HYDROCHLORIDE
  4. ZOLOFT [Suspect]
     Active Substance: SERTRALINE HYDROCHLORIDE
  5. OMEPRAZOLE. [Concomitant]
     Active Substance: OMEPRAZOLE
  6. NORCO [Suspect]
     Active Substance: ACETAMINOPHEN\HYDROCODONE BITARTRATE
  7. LOSARTAN. [Concomitant]
     Active Substance: LOSARTAN
  8. NAPROXEN. [Concomitant]
     Active Substance: NAPROXEN
  9. MS CONTIN [Suspect]
     Active Substance: MORPHINE SULFATE
  10. NEURONTIN [Suspect]
     Active Substance: GABAPENTIN
  11. PERCOCET [Suspect]
     Active Substance: ACETAMINOPHEN\OXYCODONE HYDROCHLORIDE
     Indication: PAIN
     Dosage: 5/325MG Q8HRS PRN PO?CHRONIC
  12. ELAVIL [Suspect]
     Active Substance: AMITRIPTYLINE HYDROCHLORIDE
  13. FUROSEMIDE. [Concomitant]
     Active Substance: FUROSEMIDE
  14. WARFARIN [Concomitant]
     Active Substance: WARFARIN
  15. TRAMADOL. [Suspect]
     Active Substance: TRAMADOL

REACTIONS (4)
  - Respiratory failure [None]
  - Overdose [None]
  - Acute kidney injury [None]
  - Encephalopathy [None]

NARRATIVE: CASE EVENT DATE: 20150610
